FAERS Safety Report 15309838 (Version 1)
Quarter: 2018Q3

REPORT INFORMATION
  Report Type: Report from Study
  Country: MX (occurrence: MX)
  Receive Date: 20180823
  Receipt Date: 20180823
  Transmission Date: 20181010
  Serious: Yes (Death, Other)
  Sender: FDA-Public Use
  Company Number: MX-BRISTOL-MYERS SQUIBB COMPANY-BMS-2018-078707

PATIENT
  Sex: Female

DRUGS (1)
  1. DASATINIB. [Suspect]
     Active Substance: DASATINIB
     Indication: CHRONIC MYELOID LEUKAEMIA
     Dosage: 150 MG, DAILY
     Route: 048
     Dates: start: 20180806, end: 20180813

REACTIONS (5)
  - Drug ineffective [Unknown]
  - Prescribed overdose [Unknown]
  - Pneumonia [Unknown]
  - Electrolyte imbalance [Fatal]
  - Pleural effusion [Unknown]
